FAERS Safety Report 9995589 (Version 1)
Quarter: 2014Q1

REPORT INFORMATION
  Report Type: Spontaneous
  Country: US (occurrence: None)
  Receive Date: 20140307
  Receipt Date: 20140307
  Transmission Date: 20141002
  Serious: No
  Sender: FDA-Public Use
  Company Number: None

PATIENT
  Age: 75 Year
  Sex: Female
  Weight: 83.92 kg

DRUGS (7)
  1. AMLODIPINE [Suspect]
     Indication: HYPERTENSION
     Dosage: BY MOUTH
     Dates: start: 201311
  2. GLIPZINE [Concomitant]
  3. ATENOLOL [Concomitant]
  4. LOSARTAN [Concomitant]
  5. ALLOPURINOL [Concomitant]
  6. LONATADINE [Concomitant]
  7. DIPHENYDRAMINE [Concomitant]

REACTIONS (3)
  - Pruritus [None]
  - Urticaria [None]
  - Acarodermatitis [None]
